FAERS Safety Report 22061367 (Version 1)
Quarter: 2023Q1

REPORT INFORMATION
  Report Type: Report from Study
  Country: IL (occurrence: IL)
  Receive Date: 20230304
  Receipt Date: 20230304
  Transmission Date: 20230417
  Serious: Yes (Death, Hospitalization, Other)
  Sender: FDA-Public Use
  Company Number: IL-ABBVIE-4132246

PATIENT
  Age: 84 Year
  Sex: Female
  Weight: 63 kg

DRUGS (18)
  1. VENETOCLAX [Suspect]
     Active Substance: VENETOCLAX
     Indication: Chronic lymphocytic leukaemia
     Dosage: 200 MILLIGRAM
     Route: 048
     Dates: start: 20200126, end: 20210919
  2. VENETOCLAX [Suspect]
     Active Substance: VENETOCLAX
     Indication: Chronic lymphocytic leukaemia
     Dosage: 100 MILLIGRAM
     Route: 048
     Dates: start: 20200107, end: 20200125
  3. VENETOCLAX [Suspect]
     Active Substance: VENETOCLAX
     Indication: Chronic lymphocytic leukaemia
     Dosage: 50 MILLIGRAM
     Route: 048
     Dates: start: 20191231, end: 20200106
  4. VENETOCLAX [Suspect]
     Active Substance: VENETOCLAX
     Indication: Chronic lymphocytic leukaemia
     Route: 048
     Dates: start: 20191218, end: 20191230
  5. covid 19 vaccine- pfizer [Concomitant]
     Indication: COVID-19 immunisation
     Dates: start: 20210121, end: 20210121
  6. covid 19 vaccine- pfizer [Concomitant]
     Indication: COVID-19 immunisation
     Dates: start: 20201231, end: 20201231
  7. AMBIEN [Concomitant]
     Active Substance: ZOLPIDEM TARTRATE
     Indication: Prophylaxis
     Dates: start: 20140121
  8. stator [Concomitant]
     Indication: Hypercholesterolaemia
     Dates: start: 20141214
  9. ALLOPURINOL [Concomitant]
     Active Substance: ALLOPURINOL
     Indication: Prophylaxis
     Dates: start: 20191217, end: 202001
  10. AMLODIPINE [Concomitant]
     Active Substance: AMLODIPINE BESYLATE
     Indication: Hypertension
     Dates: start: 20180326
  11. ESCITALOPRAM [Concomitant]
     Active Substance: ESCITALOPRAM OXALATE
     Indication: Prophylaxis
     Dates: start: 20111205
  12. ASPIRIN [Concomitant]
     Active Substance: ASPIRIN
     Indication: Thrombosis prophylaxis
     Dates: start: 20181108
  13. RITUXIMAB [Suspect]
     Active Substance: RITUXIMAB
     Indication: Product used for unknown indication
     Dosage: 850 MILLIGRAM
     Route: 065
     Dates: start: 20201206, end: 20201206
  14. RITUXIMAB [Suspect]
     Active Substance: RITUXIMAB
     Indication: Product used for unknown indication
     Dosage: 850 MILLIGRAM
     Route: 065
     Dates: start: 20201004, end: 20201004
  15. RITUXIMAB [Suspect]
     Active Substance: RITUXIMAB
     Indication: Product used for unknown indication
     Dosage: 640 MILLIGRAM
     Route: 065
     Dates: start: 20200726, end: 20200726
  16. RITUXIMAB [Suspect]
     Active Substance: RITUXIMAB
     Indication: Product used for unknown indication
     Dosage: 850 MILLIGRAM
     Route: 065
     Dates: start: 20200906, end: 20200906
  17. RITUXIMAB [Suspect]
     Active Substance: RITUXIMAB
     Indication: Product used for unknown indication
     Dosage: 850 MILLIGRAM
     Route: 065
     Dates: start: 20201101, end: 20201101
  18. RITUXIMAB [Suspect]
     Active Substance: RITUXIMAB
     Indication: Product used for unknown indication
     Dosage: 850 MILLIGRAM
     Route: 065
     Dates: start: 20210224, end: 20210224

REACTIONS (2)
  - Chronic lymphocytic leukaemia [Unknown]
  - Pneumonia [Fatal]

NARRATIVE: CASE EVENT DATE: 20210917
